FAERS Safety Report 16387155 (Version 5)
Quarter: 2019Q3

REPORT INFORMATION
  Report Type: Report from Study
  Country: FR (occurrence: FR)
  Receive Date: 20190604
  Receipt Date: 20190927
  Transmission Date: 20191004
  Serious: Yes (Hospitalization, Other)
  Sender: FDA-Public Use
  Company Number: FR-TAKEDA-2019TUS033120

PATIENT
  Age: 74 Year
  Sex: Female
  Weight: 75 kg

DRUGS (3)
  1. IXAZOMIB [Suspect]
     Active Substance: IXAZOMIB
     Indication: PLASMA CELL MYELOMA
     Dosage: 3 MILLIGRAM
     Route: 048
     Dates: start: 20150107, end: 20190527
  2. LENALIDOMIDE [Suspect]
     Active Substance: LENALIDOMIDE
     Dosage: 25 MILLIGRAM
     Route: 048
     Dates: start: 20150107
  3. PYOSTACINE [Concomitant]
     Active Substance: PRISTINAMYCIN
     Indication: BRONCHITIS

REACTIONS (1)
  - Focal segmental glomerulosclerosis [Recovered/Resolved]

NARRATIVE: CASE EVENT DATE: 20190524
